FAERS Safety Report 20820122 (Version 1)
Quarter: 2022Q2

REPORT INFORMATION
  Report Type: Spontaneous
  Country: US (occurrence: None)
  Receive Date: 20220512
  Receipt Date: 20220512
  Transmission Date: 20220720
  Serious: Yes (Hospitalization)
  Sender: FDA-Public Use
  Company Number: None

PATIENT
  Age: 77 Year
  Sex: Male
  Weight: 176 kg

DRUGS (1)
  1. HYDROCHLOROTHIAZIDE [Suspect]
     Active Substance: HYDROCHLOROTHIAZIDE
     Indication: Hypertension
     Dosage: FREQUENCY : DAILY; 1 TAB
     Route: 048
     Dates: start: 20210225, end: 20210906

REACTIONS (5)
  - Fall [None]
  - Balance disorder [None]
  - Humerus fracture [None]
  - Hyponatraemia [None]
  - Ataxia [None]

NARRATIVE: CASE EVENT DATE: 20210902
